FAERS Safety Report 20906086 (Version 1)
Quarter: 2022Q2

REPORT INFORMATION
  Report Type: Spontaneous
  Country: US (occurrence: US)
  Receive Date: 20220602
  Receipt Date: 20220602
  Transmission Date: 20220720
  Serious: No
  Sender: FDA-Public Use
  Company Number: US-COLLEGIUM PHARMACEUTICAL, INC.-2021CGM01075

PATIENT
  Age: 76 Year
  Sex: Female
  Weight: 44.898 kg

DRUGS (4)
  1. XTAMPZA ER [Suspect]
     Active Substance: OXYCODONE
     Indication: Back pain
     Dosage: 36 MG, EVERY 12 HOURS
     Route: 048
     Dates: start: 20210922, end: 20210923
  2. UNSPECIFIED THYROID COMPOUND [Concomitant]
  3. ATORVASTATIN [Concomitant]
     Active Substance: ATORVASTATIN
  4. HYDROCORTISONE [Concomitant]
     Active Substance: HYDROCORTISONE
     Dosage: 7.5 MG, 1X/DAY

REACTIONS (4)
  - Pain [Recovering/Resolving]
  - Feeding disorder [Recovering/Resolving]
  - Insomnia [Recovering/Resolving]
  - Drug ineffective [Recovered/Resolved]

NARRATIVE: CASE EVENT DATE: 20210922
